FAERS Safety Report 10551051 (Version 1)
Quarter: 2014Q4

REPORT INFORMATION
  Report Type: Spontaneous
  Country: BR (occurrence: None)
  Receive Date: 20141027
  Receipt Date: 20141027
  Transmission Date: 20150529
  Serious: Yes (Other)
  Sender: FDA-Public Use
  Company Number: BR-ZYDUS-005295

PATIENT
  Age: 46 Year
  Sex: Female

DRUGS (3)
  1. PARACETAMOL (PARACETAMOL) [Suspect]
     Active Substance: ACETAMINOPHEN
  2. TRAMADOL (TRAMADOL) [Suspect]
     Active Substance: TRAMADOL
  3. AMITRIPTYLINE (AMITRIPTYLENE) [Suspect]
     Active Substance: AMITRIPTYLINE

REACTIONS (2)
  - Serotonin syndrome [None]
  - Drug interaction [None]
